FAERS Safety Report 25417991 (Version 1)
Quarter: 2025Q2

REPORT INFORMATION
  Report Type: Report from Study
  Country: AR (occurrence: AR)
  Receive Date: 20250610
  Receipt Date: 20250610
  Transmission Date: 20250717
  Serious: Yes (Other)
  Sender: ABBVIE
  Company Number: AR-ABBVIE-6319032

PATIENT
  Age: 73 Year
  Sex: Female

DRUGS (1)
  1. RINVOQ [Suspect]
     Active Substance: UPADACITINIB
     Indication: Rheumatoid arthritis
     Route: 048
     Dates: start: 20200920

REACTIONS (5)
  - Loss of consciousness [Unknown]
  - Immunodeficiency [Unknown]
  - Dehydration [Unknown]
  - Anaemia [Unknown]
  - Malnutrition [Unknown]

NARRATIVE: CASE EVENT DATE: 20250501
